FAERS Safety Report 23355391 (Version 1)
Quarter: 2024Q1

REPORT INFORMATION
  Report Type: Report from Study
  Country: US (occurrence: US)
  Receive Date: 20240102
  Receipt Date: 20240102
  Transmission Date: 20240409
  Serious: Yes (Disabling, Other)
  Sender: FDA-Public Use
  Company Number: US-ABBVIE-5561266

PATIENT
  Sex: Male

DRUGS (1)
  1. IMBRUVICA [Suspect]
     Active Substance: IBRUTINIB
     Indication: B-cell small lymphocytic lymphoma
     Route: 048
     Dates: start: 20200616

REACTIONS (5)
  - Pain in extremity [Unknown]
  - Asthenia [Unknown]
  - Fistula [Unknown]
  - Musculoskeletal disorder [Unknown]
  - End stage renal disease [Unknown]
